FAERS Safety Report 8419271 (Version 2)
Quarter: 2012Q4

REPORT INFORMATION
  Report Type: Spontaneous
  Country: JP (occurrence: None)
  Receive Date: 20120208
  Receipt Date: 20121023
  Transmission Date: 20130627
  Serious: Yes (Hospitalization)
  Sender: FDA-Public Use
  Company Number: JP-20120003

PATIENT
  Age: 82 Year
  Sex: Male

DRUGS (1)
  1. ETHIODIZED OIL [Suspect]
     Indication: THERAPEUTIC EMBOLISATION
     Dosage: (1 D)
     Route: 013
     Dates: start: 20100331, end: 20100331

REACTIONS (3)
  - Liver abscess [None]
  - Klebsiella test positive [None]
  - Off label use [None]
